FAERS Safety Report 9165164 (Version 1)
Quarter: 2013Q1

REPORT INFORMATION
  Report Type: Spontaneous
  Country: US (occurrence: US)
  Receive Date: 20130315
  Receipt Date: 20130315
  Transmission Date: 20140127
  Serious: Yes (Hospitalization)
  Sender: FDA-Public Use
  Company Number: US-ELI_LILLY_AND_COMPANY-US201303002357

PATIENT
  Sex: Female

DRUGS (4)
  1. HUMALOG 25% LISPRO, 75% NPL [Suspect]
     Indication: TYPE 2 DIABETES MELLITUS
     Dosage: 25 U, BID
     Dates: start: 2011
  2. HUMALOG 25% LISPRO, 75% NPL [Suspect]
     Dosage: 20 U, EACH MORNING
     Dates: start: 2011
  3. HUMALOG 25% LISPRO, 75% NPL [Suspect]
     Dosage: 40 U, EACH EVENING
     Dates: start: 2011
  4. LANTUS [Concomitant]

REACTIONS (5)
  - Localised infection [Unknown]
  - Cardiac disorder [Unknown]
  - Gout [Unknown]
  - Blood glucose increased [Unknown]
  - Blood glucose decreased [Unknown]
